FAERS Safety Report 8172790 (Version 4)
Quarter: 2014Q1

REPORT INFORMATION
  Report Type: Spontaneous
  Country: US (occurrence: US)
  Receive Date: 20111007
  Receipt Date: 20140110
  Transmission Date: 20141002
  Serious: Yes (Hospitalization)
  Sender: FDA-Public Use
  Company Number: US-GLAXOSMITHKLINE-B0752851A

PATIENT
  Age: 66 Year
  Sex: Female
  Weight: 77.3 kg

DRUGS (7)
  1. AVANDIA [Suspect]
     Indication: DIABETES MELLITUS
     Dosage: 8MG PER DAY
     Route: 048
     Dates: start: 2001, end: 20070706
  2. NEXIUM [Concomitant]
  3. CARDIZEM [Concomitant]
  4. SINGULAIR [Concomitant]
  5. LIPITOR [Concomitant]
  6. HCTZ [Concomitant]
  7. NEURONTIN [Concomitant]

REACTIONS (6)
  - Atrial fibrillation [Not Recovered/Not Resolved]
  - Syncope [Unknown]
  - Bradycardia [Unknown]
  - Palpitations [Unknown]
  - Dizziness [Unknown]
  - Cardiac disorder [Unknown]
